FAERS Safety Report 7259306-3 (Version None)
Quarter: 2011Q1

REPORT INFORMATION
  Report Type: 
  Country: None (occurrence: None)
  Receive Date: 20110129
  Receipt Date: 20100817
  Transmission Date: 20110831
  Serious: No
  Sender: FDA-Public Use
  Company Number: US-ABBOTT-10P-163-0665454-00

PATIENT
  Sex: Female
  Weight: 70.37 kg

DRUGS (4)
  1. ASPIRIN [Concomitant]
     Indication: PRODUCT USED FOR UNKNOWN INDICATION
  2. PREDNISONE [Concomitant]
     Indication: ARTHRALGIA
     Dosage: 1 TO 3 TABS DAILY
  3. MULTI-VITAMIN [Concomitant]
     Indication: PRODUCT USED FOR UNKNOWN INDICATION
  4. HUMIRA [Suspect]
     Indication: RHEUMATOID ARTHRITIS
     Dates: start: 20100629

REACTIONS (4)
  - INJECTION SITE PAIN [None]
  - PAIN [None]
  - DRUG INEFFECTIVE [None]
  - INJECTION SITE SWELLING [None]
